FAERS Safety Report 9262033 (Version 4)
Quarter: 2014Q2

REPORT INFORMATION
  Report Type: Spontaneous
  Country: US (occurrence: US)
  Receive Date: 20130429
  Receipt Date: 20140606
  Transmission Date: 20141212
  Serious: No
  Sender: FDA-Public Use
  Company Number: US-009507513-1304USA016946

PATIENT
  Sex: Male
  Weight: 96.6 kg

DRUGS (5)
  1. PROPECIA [Suspect]
     Indication: ANDROGENETIC ALOPECIA
     Dosage: 1 MG, UNK
     Route: 048
     Dates: start: 20080410, end: 20080510
  2. IBUPROFEN [Concomitant]
     Indication: RADICULAR PAIN
     Dosage: 400MG-200MG-200MG-200MG PER DAY
  3. IBUPROFEN [Concomitant]
     Dosage: 600 MG, TID, PRN
  4. ALEVE [Concomitant]
     Indication: RADICULAR PAIN
  5. DICLOFENAC [Concomitant]
     Indication: RADICULAR PAIN

REACTIONS (5)
  - Insomnia [Not Recovered/Not Resolved]
  - Lyme disease [Not Recovered/Not Resolved]
  - Erectile dysfunction [Not Recovered/Not Resolved]
  - Sexual dysfunction [Not Recovered/Not Resolved]
  - Rash [Unknown]
